FAERS Safety Report 5993189-4 (Version None)
Quarter: 2008Q4

REPORT INFORMATION
  Report Type: 
  Country: None (occurrence: None)
  Receive Date: 20081212
  Receipt Date: 20081129
  Transmission Date: 20090506
  Serious: Yes (Hospitalization)
  Sender: FDA-Public Use
  Company Number: PHHY2008MX30288

PATIENT
  Age: 50 Year
  Sex: Female

DRUGS (2)
  1. DIOVAN HCT [Suspect]
     Indication: HYPERTENSION
     Dosage: 80/12.5 MG PER DAY
     Route: 048
     Dates: start: 20070501
  2. NIFEDIPINE [Concomitant]
     Indication: HYPERTENSION
     Dosage: 1 TABLET PER DAY

REACTIONS (1)
  - SURGERY [None]
